FAERS Safety Report 7982515-2 (Version None)
Quarter: 2011Q4

REPORT INFORMATION
  Report Type: 
  Country: None (occurrence: None)
  Receive Date: 20111215
  Receipt Date: 20111206
  Transmission Date: 20120403
  Serious: Yes (Hospitalization, Disabling, Other)
  Sender: FDA-Public Use
  Company Number: BR-SANOFI-AVENTIS-2011SA080300

PATIENT
  Age: 55 Year
  Sex: Female
  Weight: 101 kg

DRUGS (8)
  1. METOPROLOL SUCCINATE [Concomitant]
     Route: 048
  2. ALL OTHER THERAPEUTIC PRODUCTS [Concomitant]
     Route: 058
  3. ISORDIL [Concomitant]
     Route: 048
  4. ISOSORBIDE DINITRATE [Concomitant]
     Route: 048
  5. IRBESARTAN [Concomitant]
     Route: 048
  6. DIGOXIN [Concomitant]
     Route: 048
  7. LANTUS [Suspect]
     Route: 065
     Dates: start: 20050101
  8. FUROSEMIDE [Concomitant]
     Route: 048

REACTIONS (2)
  - MYOCARDIAL INFARCTION [None]
  - BLINDNESS UNILATERAL [None]
